FAERS Safety Report 16974539 (Version 1)
Quarter: 2019Q4

REPORT INFORMATION
  Report Type: Spontaneous
  Country: US (occurrence: US)
  Receive Date: 20190912
  Receipt Date: 20190912
  Transmission Date: 20200122
  Serious: Yes (Other)
  Sender: FDA-Public Use
  Company Number: None

PATIENT
  Age: 59 Year
  Sex: Female
  Weight: 77.11 kg

DRUGS (10)
  1. EVOLOCLOMAB ON-BODY INFUSOR AND PRE-FILLED CARTRIDGE [Suspect]
     Active Substance: EVOLOCUMAB
  2. PERCOCET [Concomitant]
     Active Substance: ACETAMINOPHEN\OXYCODONE HYDROCHLORIDE
  3. SUMATRIPTAN. [Concomitant]
     Active Substance: SUMATRIPTAN
  4. GABAPENTIN. [Concomitant]
     Active Substance: GABAPENTIN
  5. QUIETAPINE [Concomitant]
  6. EZETIMIBE. [Concomitant]
     Active Substance: EZETIMIBE
  7. METHOCARBAMOL. [Concomitant]
     Active Substance: METHOCARBAMOL
  8. BENZTROPINE. [Concomitant]
     Active Substance: BENZTROPINE
  9. REPATHA [Suspect]
     Active Substance: EVOLOCUMAB
     Indication: BLOOD CHOLESTEROL INCREASED
     Dosage: ?          QUANTITY:420MG/3.5ML;?
     Route: 058
     Dates: start: 20190810, end: 20190910
  10. METAPROLOL TARTRATE [Concomitant]
     Active Substance: METOPROLOL TARTRATE

REACTIONS (8)
  - Dyskinesia [None]
  - Abdominal discomfort [None]
  - Dysphagia [None]
  - Product label confusion [None]
  - Chest pain [None]
  - Fatigue [None]
  - Urinary incontinence [None]
  - Manufacturing product shipping issue [None]

NARRATIVE: CASE EVENT DATE: 20190810
